FAERS Safety Report 6270876-4 (Version None)
Quarter: 2009Q3

REPORT INFORMATION
  Report Type: 
  Country: None (occurrence: None)
  Receive Date: 20090715
  Receipt Date: 20090702
  Transmission Date: 20100115
  Serious: Yes (Disabling, Other)
  Sender: FDA-Public Use
  Company Number: 237374K09USA

PATIENT
  Age: 76 Year
  Sex: Male

DRUGS (2)
  1. REBIF [Suspect]
     Indication: MULTIPLE SCLEROSIS
     Dosage: 44 MCG, 3 IN 1 WEEKS, SUBCUTANEOUS
     Route: 058
     Dates: start: 20030101
  2. PRILOSEC [Concomitant]

REACTIONS (6)
  - CATARACT [None]
  - DEAFNESS UNILATERAL [None]
  - DISEASE PROGRESSION [None]
  - DYSPEPSIA [None]
  - HELICOBACTER INFECTION [None]
  - MULTIPLE SCLEROSIS [None]
